FAERS Safety Report 9602010 (Version 2)
Quarter: 2013Q4

REPORT INFORMATION
  Report Type: Report from Study
  Country: JP (occurrence: JP)
  Receive Date: 20131007
  Receipt Date: 20131007
  Transmission Date: 20140711
  Serious: Yes (Death, Hospitalization, Disabling, Other)
  Sender: FDA-Public Use
  Company Number: JP-009507513-1305JPN007774

PATIENT
  Age: 12 Year
  Sex: Female
  Weight: 37 kg

DRUGS (33)
  1. TEMOZOLOMIDE [Suspect]
     Indication: ANAPLASTIC ASTROCYTOMA
     Dosage: 75 MG/M2, QD
     Route: 041
     Dates: start: 20120205, end: 20120315
  2. TEMOZOLOMIDE [Suspect]
     Dosage: 200 MG/M2, QD
     Route: 041
     Dates: start: 20121015, end: 20121019
  3. TEMOZOLOMIDE [Suspect]
     Dosage: 150 MG/M2, QD
     Route: 041
     Dates: start: 20121102, end: 20121124
  4. TEMOZOLOMIDE [Suspect]
     Dosage: 150 MG/M2, QD
     Route: 041
     Dates: start: 20121218, end: 20121222
  5. TEMOZOLOMIDE [Suspect]
     Dosage: 150 MG/M2, QD
     Route: 041
     Dates: start: 20130123, end: 20130126
  6. TEMOZOLOMIDE [Suspect]
     Dosage: 150 MG/M2, QD
     Route: 041
     Dates: start: 20130218, end: 20130222
  7. TEMOZOLOMIDE [Suspect]
     Dosage: 150 MG/M2, QD
     Route: 041
     Dates: start: 20130325, end: 20130329
  8. TEMOZOLOMIDE [Suspect]
     Dosage: UNK
  9. TEMODAL CAPSULES 100MG [Suspect]
     Indication: ANAPLASTIC ASTROCYTOMA
     Dosage: 75 MG/1 DAY
     Route: 048
     Dates: start: 20120203, end: 20120204
  10. BAKTAR [Concomitant]
     Indication: ANTIFUNGAL PROPHYLAXIS
     Dosage: DAILY DOSE UNKNOWN
     Route: 048
     Dates: start: 20120203, end: 20120204
  11. BACTRAMIN [Concomitant]
     Indication: ANTIFUNGAL PROPHYLAXIS
     Dosage: DAILY DOSAGE UNKNOWN
     Route: 041
     Dates: start: 20120205
  12. SINSERON [Concomitant]
     Indication: PROPHYLAXIS
     Dosage: DAILY DOSE UNKNOWN
     Route: 048
     Dates: start: 20120203, end: 20120204
  13. GRANISETRON [Concomitant]
     Indication: PROPHYLAXIS
     Dosage: DAILY DOSAGE UNKOWN
     Route: 041
     Dates: start: 20120205, end: 20120315
  14. GRANISETRON [Concomitant]
     Dosage: DAILY DOSAGE UNKOWN
     Route: 041
     Dates: start: 20120416, end: 20120420
  15. GRANISETRON [Concomitant]
     Dosage: DAILY DOSAGE UNKOWN
     Route: 041
     Dates: start: 20120521, end: 20120525
  16. GRANISETRON [Concomitant]
     Dosage: DAILY DOSAGE UNKOWN
     Route: 041
     Dates: start: 20120618, end: 20120622
  17. CLAFORAN [Concomitant]
     Dosage: DAILY DOSE UNKNOWN
     Route: 041
     Dates: start: 20120316, end: 20120322
  18. CLAFORAN [Concomitant]
     Dosage: DAILY DOSE UNKNOWN
     Route: 041
     Dates: start: 20120407, end: 20120415
  19. DEXART [Concomitant]
     Indication: PROPHYLAXIS
     Dosage: DAILY DOSE UNKNOWN
     Route: 041
     Dates: start: 20120321
  20. MAXIPIME [Concomitant]
     Dosage: DAILY DOSE UNKNOWN
     Route: 041
     Dates: start: 20120326, end: 20120403
  21. MAXIPIME [Concomitant]
     Dosage: DAILY DOSE UNKNOWN
     Route: 041
     Dates: start: 20120421, end: 20120430
  22. MAXIPIME [Concomitant]
     Dosage: DAILY DOSE UNKNOWN
     Route: 041
     Dates: start: 20120610, end: 20120618
  23. ZOSYN [Concomitant]
     Dosage: DAILY DOSE UNKNOWN
     Route: 041
     Dates: start: 20120430, end: 20120512
  24. ZOSYN [Concomitant]
     Dosage: DAILY DOSE UNKNOWN
     Route: 041
     Dates: start: 20120528, end: 20120531
  25. ZOSYN [Concomitant]
     Dosage: DAILY DOSE UNKNOWN
     Route: 041
     Dates: start: 20120623, end: 20120624
  26. VANCOMYCIN [Concomitant]
     Dosage: DAILY DOSAGE UNKOWN
     Route: 041
     Dates: start: 20120504, end: 20120511
  27. PASIL [Concomitant]
     Dosage: DAILY DOSE UNKNOWN
     Route: 041
     Dates: start: 20120512, end: 20120616
  28. PRODIF [Concomitant]
     Dosage: DAILY DOSE UNKNOWN
     Route: 041
     Dates: start: 20120520, end: 20120606
  29. MEROPEN [Concomitant]
     Dosage: DAILY DOSE UNKNOWN
     Route: 041
     Dates: start: 20120531, end: 20120606
  30. MEROPEN [Concomitant]
     Dosage: DAILY DOSE UNKNOWN
     Route: 041
     Dates: start: 20120624
  31. POLYGLOBIN N [Concomitant]
     Dosage: DAILY DOSAGE UNKNOWN
     Route: 041
     Dates: start: 20120606
  32. FERON [Concomitant]
     Dosage: DAILY DOSAGE UNKOWN
     Route: 041
     Dates: start: 20120928
  33. METHOTREXATE [Concomitant]
     Dosage: DAILY DOSAGE UNKOWN
     Route: 050
     Dates: start: 20121005

REACTIONS (20)
  - Disease progression [Fatal]
  - Decreased appetite [Not Recovered/Not Resolved]
  - Neutrophil count decreased [Recovered/Resolved]
  - Platelet count decreased [Recovered/Resolved]
  - Cystitis haemorrhagic [Not Recovered/Not Resolved]
  - Pyelonephritis acute [Recovered/Resolved]
  - Device related infection [Recovered/Resolved]
  - Fungal cystitis [Recovered/Resolved]
  - Pyelonephritis acute [Recovered/Resolved]
  - Calculus urinary [Recovering/Resolving]
  - Pyelonephritis acute [Recovered/Resolved]
  - Fungal cystitis [Recovered/Resolved]
  - Pyelonephritis acute [Recovered/Resolved]
  - Pyelonephritis acute [Recovered/Resolved]
  - Pyelonephritis acute [Recovered/Resolved]
  - Ureteric stenosis [Not Recovered/Not Resolved]
  - Pyelonephritis acute [Recovered/Resolved]
  - Pyelonephritis acute [Recovered/Resolved]
  - Pyelonephritis acute [Recovered/Resolved]
  - Herpes zoster [Recovered/Resolved with Sequelae]
